FAERS Safety Report 20851065 (Version 2)
Quarter: 2022Q3

REPORT INFORMATION
  Report Type: Spontaneous
  Country: CA (occurrence: CA)
  Receive Date: 20220519
  Receipt Date: 20220715
  Transmission Date: 20221027
  Serious: Yes (Other)
  Sender: FDA-Public Use
  Company Number: CA-PFIZER INC-202200524646

PATIENT
  Age: 59 Year
  Sex: Female

DRUGS (7)
  1. XELJANZ [Suspect]
     Active Substance: TOFACITINIB CITRATE
     Indication: Colitis ulcerative
     Dosage: 10 MG, 2X/DAY. DECREASE TO 5 MG BID 1 WEEK AFTER START OF ENTYVIO
     Route: 048
     Dates: start: 20211005, end: 2022
  2. XELJANZ [Suspect]
     Active Substance: TOFACITINIB CITRATE
     Dosage: 5 MG, 2X/DAY (DECREASE TO 5 MG BID 1 WEEK AFTER START OF ENTYVIO)
     Route: 048
     Dates: start: 2022, end: 2022
  3. ENTYVIO [Suspect]
     Active Substance: VEDOLIZUMAB
     Dosage: 1 DF, DOSAGE INFO IS NOT AVAILABLE
     Route: 065
     Dates: start: 20220307
  4. BENADRYL [Concomitant]
     Active Substance: DIPHENHYDRAMINE HYDROCHLORIDE
     Indication: Premedication
     Dosage: UNK
  5. HYDROCORTISONE [Concomitant]
     Active Substance: HYDROCORTISONE
     Indication: Premedication
     Dosage: UNK
  6. PREDNISONE [Concomitant]
     Active Substance: PREDNISONE
     Dosage: 40 MG, DAILY, TAPERING DOSE BELOW 25
     Route: 065
  7. PREDNISONE [Concomitant]
     Active Substance: PREDNISONE
     Dosage: 25 MG, 1X/DAY TAPERING DOSE
     Route: 065

REACTIONS (15)
  - Haematochezia [Unknown]
  - Clostridium difficile infection [Unknown]
  - Ligament rupture [Unknown]
  - Fall [Unknown]
  - Colectomy [Unknown]
  - Off label use [Unknown]
  - Product use issue [Unknown]
  - Arthralgia [Unknown]
  - Pruritus [Unknown]
  - Dyspnoea [Unknown]
  - Wheezing [Unknown]
  - Rash [Unknown]
  - Bronchitis [Unknown]
  - Weight increased [Unknown]
  - Chronic obstructive pulmonary disease [Unknown]

NARRATIVE: CASE EVENT DATE: 20220101
